FAERS Safety Report 12481479 (Version 2)
Quarter: 2016Q4

REPORT INFORMATION
  Report Type: Spontaneous
  Country: US (occurrence: US)
  Receive Date: 20160620
  Receipt Date: 20161111
  Transmission Date: 20170207
  Serious: No
  Sender: FDA-Public Use
  Company Number: US-GLAXOSMITHKLINE-US2016GSK080661

PATIENT
  Age: 39 Year
  Sex: Female

DRUGS (12)
  1. LAMICTAL [Suspect]
     Active Substance: LAMOTRIGINE
     Dosage: 100 MG, QD
     Route: 048
  2. LATUDA [Suspect]
     Active Substance: LURASIDONE HYDROCHLORIDE
     Indication: BIPOLAR DISORDER
     Dosage: 20 MG, U
     Route: 048
     Dates: start: 2015, end: 2015
  3. LATUDA [Suspect]
     Active Substance: LURASIDONE HYDROCHLORIDE
     Dosage: 40 MG, UNK
     Dates: start: 2015, end: 2015
  4. ABILIFY [Concomitant]
     Active Substance: ARIPIPRAZOLE
  5. LATUDA [Suspect]
     Active Substance: LURASIDONE HYDROCHLORIDE
     Dosage: 60 UNK, UNK
     Dates: start: 201601
  6. ADVAIR HFA [Concomitant]
     Active Substance: FLUTICASONE PROPIONATE\SALMETEROL XINAFOATE
  7. RISPERDAL [Concomitant]
     Active Substance: RISPERIDONE
  8. IRON [Concomitant]
     Active Substance: IRON
  9. LAMICTAL [Suspect]
     Active Substance: LAMOTRIGINE
     Indication: PRODUCT USED FOR UNKNOWN INDICATION
     Dosage: 200 MG, QD
     Route: 048
     Dates: start: 2015
  10. CALCIUM CARBONATE + VITAMIN D [Concomitant]
  11. GEODON [Concomitant]
     Active Substance: ZIPRASIDONE HYDROCHLORIDE\ZIPRASIDONE MESYLATE
  12. HALDOL [Concomitant]
     Active Substance: HALOPERIDOL

REACTIONS (3)
  - Hypersomnia [Unknown]
  - Fatigue [Not Recovered/Not Resolved]
  - Polymenorrhoea [Recovered/Resolved]

NARRATIVE: CASE EVENT DATE: 201506
